FAERS Safety Report 23789563 (Version 1)
Quarter: 2024Q2

REPORT INFORMATION
  Report Type: Spontaneous
  Country: UA (occurrence: UA)
  Receive Date: 20240426
  Receipt Date: 20240426
  Transmission Date: 20240716
  Serious: Yes (Death)
  Sender: FDA-Public Use
  Company Number: UA-MYLANLABS-2024M1008194

PATIENT
  Age: 50 Year
  Sex: Female

DRUGS (6)
  1. PRETOMANID [Suspect]
     Active Substance: PRETOMANID
     Indication: Pulmonary tuberculosis
     Dosage: 0.2 GRAM, QD
     Route: 048
     Dates: start: 20231108
  2. PRETOMANID [Suspect]
     Active Substance: PRETOMANID
     Dosage: 1 DOSAGE FORM, QD
     Route: 048
     Dates: start: 20231110, end: 20240208
  3. LINEZOLID [Suspect]
     Active Substance: LINEZOLID
     Indication: Pulmonary tuberculosis
     Dosage: 0.6 GRAM, QD
     Route: 048
     Dates: start: 20231108
  4. LINEZOLID [Suspect]
     Active Substance: LINEZOLID
     Dosage: 1 DOSAGE FORM, QD
     Route: 048
     Dates: start: 20231110, end: 20240208
  5. BEDAQUILINE [Suspect]
     Active Substance: BEDAQUILINE
     Indication: Pulmonary tuberculosis
     Dosage: 0.2 GRAM, 3XW
     Route: 048
     Dates: start: 20231108
  6. BEDAQUILINE [Suspect]
     Active Substance: BEDAQUILINE
     Dosage: 2 DOSAGE FORM, 3XW
     Route: 048
     Dates: start: 20231110, end: 20240208

REACTIONS (4)
  - Death [Fatal]
  - Abdominal pain [Not Recovered/Not Resolved]
  - Candida infection [Not Recovered/Not Resolved]
  - Nausea [Recovering/Resolving]

NARRATIVE: CASE EVENT DATE: 20240104
